FAERS Safety Report 10247424 (Version 3)
Quarter: 2014Q2

REPORT INFORMATION
  Report Type: Report from Study
  Country: US (occurrence: US)
  Receive Date: 20140619
  Receipt Date: 20140626
  Transmission Date: 20141212
  Serious: Yes (Other)
  Sender: FDA-Public Use
  Company Number: US-ABBVIE-14P-163-1246965-00

PATIENT
  Age: 52 Year
  Sex: Female
  Weight: 54.93 kg

DRUGS (6)
  1. HUMIRA [Suspect]
     Indication: CROHN^S DISEASE
     Dates: start: 2004, end: 201404
  2. CYMBALTA [Concomitant]
     Indication: PRODUCT USED FOR UNKNOWN INDICATION
  3. NEXIUM [Concomitant]
     Indication: PRODUCT USED FOR UNKNOWN INDICATION
  4. TOPROL [Concomitant]
     Indication: PRODUCT USED FOR UNKNOWN INDICATION
  5. XANAX [Concomitant]
     Indication: PRODUCT USED FOR UNKNOWN INDICATION
  6. ESTROGEN [Concomitant]
     Indication: PRODUCT USED FOR UNKNOWN INDICATION

REACTIONS (10)
  - Visual impairment [Not Recovered/Not Resolved]
  - White blood cell count decreased [Unknown]
  - Bite [Recovered/Resolved with Sequelae]
  - Staphylococcal infection [Recovered/Resolved]
  - Hordeolum [Not Recovered/Not Resolved]
  - Arthritis [Not Recovered/Not Resolved]
  - Scar [Not Recovered/Not Resolved]
  - Cataract [Unknown]
  - Visual impairment [Unknown]
  - Myopia [Unknown]
